FAERS Safety Report 20517117 (Version 2)
Quarter: 2022Q1

REPORT INFORMATION
  Report Type: Spontaneous
  Country: JP (occurrence: JP)
  Receive Date: 20220225
  Receipt Date: 20220307
  Transmission Date: 20220424
  Serious: Yes (Life-Threatening, Hospitalization, Other)
  Sender: FDA-Public Use
  Company Number: JP-ASTELLAS-2022JP002674

PATIENT
  Age: 75 Year
  Sex: Male

DRUGS (4)
  1. PADCEV [Suspect]
     Active Substance: ENFORTUMAB VEDOTIN-EJFV
     Indication: Bladder cancer
     Route: 041
     Dates: start: 20220126, end: 20220209
  2. PREDNISOLONE [Suspect]
     Active Substance: PREDNISOLONE
     Indication: Stevens-Johnson syndrome
     Dosage: 60 MG/DAY(1MG/KG), UNKNOWN FREQ.
     Route: 065
     Dates: start: 20220217
  3. SOLU-MEDROL [Concomitant]
     Active Substance: METHYLPREDNISOLONE SODIUM SUCCINATE
     Indication: Stevens-Johnson syndrome
     Dosage: 1000 MG/DAY, UNKNOWN FREQ.
     Route: 065
     Dates: start: 20220214, end: 20220216
  4. KENKETU GLOVENIN-I [Concomitant]
     Active Substance: HUMAN IMMUNOGLOBULIN G
     Indication: Stevens-Johnson syndrome
     Dosage: 5000 MG X 5V/DAY, UNKNOWN FREQ.
     Route: 065
     Dates: start: 20220217, end: 20220221

REACTIONS (7)
  - Ascites [Unknown]
  - Stevens-Johnson syndrome [Unknown]
  - Toxic epidermal necrolysis [Unknown]
  - Platelet count decreased [Not Recovered/Not Resolved]
  - Pyrexia [Not Recovered/Not Resolved]
  - Delirium [Not Recovered/Not Resolved]
  - Blood glucose increased [Unknown]

NARRATIVE: CASE EVENT DATE: 20220201
